FAERS Safety Report 8797292 (Version 3)
Quarter: 2013Q2

REPORT INFORMATION
  Report Type: Report from Study
  Country: FR (occurrence: FR)
  Receive Date: 20120919
  Receipt Date: 20130517
  Transmission Date: 20140414
  Serious: Yes (Death, Hospitalization, Other)
  Sender: FDA-Public Use
  Company Number: FR-ACTELION-A-CH2012-71475

PATIENT
  Age: 42 Year
  Sex: Female
  Weight: 72 kg

DRUGS (3)
  1. TRACLEER [Suspect]
     Indication: SKIN ULCER
     Dosage: 125 MG, BID
     Route: 048
     Dates: end: 201209
  2. TRACLEER [Suspect]
     Dosage: 62.5 MG, BID
     Route: 048
     Dates: start: 20090106
  3. TAHOR [Suspect]

REACTIONS (14)
  - Ventricular tachycardia [Fatal]
  - Cardiac arrest [Fatal]
  - Hepatocellular injury [Not Recovered/Not Resolved]
  - Liver function test abnormal [Not Recovered/Not Resolved]
  - Cholestasis [Not Recovered/Not Resolved]
  - Drug interaction [Unknown]
  - Cardiac failure [Unknown]
  - Prothrombin time ratio decreased [Not Recovered/Not Resolved]
  - Portal hypertension [Unknown]
  - Varices oesophageal [Unknown]
  - Biopsy liver [Unknown]
  - Hepatic congestion [Unknown]
  - Hepatic steatosis [Unknown]
  - Device malfunction [Fatal]
